FAERS Safety Report 5548124-X (Version None)
Quarter: 2007Q4

REPORT INFORMATION
  Report Type: 
  Country: None (occurrence: None)
  Receive Date: 20071206
  Receipt Date: 20071126
  Transmission Date: 20080405
  Serious: Yes (Death, Hospitalization, Other)
  Sender: FDA-Public Use
  Company Number: RENA-12329

PATIENT
  Age: 49 Year
  Sex: Female

DRUGS (6)
  1. RENAGEL [Suspect]
     Indication: HYPERPHOSPHATAEMIA
     Dosage: 3.2 G TID PO
     Route: 048
     Dates: start: 20070614, end: 20071105
  2. ZANTAC [Concomitant]
  3. BIOFERMIN [Concomitant]
  4. BUSCOPAN [Concomitant]
  5. ROWATINEX [Concomitant]
  6. GASCON [Concomitant]

REACTIONS (4)
  - ABDOMINAL DISTENSION [None]
  - ASCITES [None]
  - CACHEXIA [None]
  - COLON CANCER METASTATIC [None]
